FAERS Safety Report 7947114-7 (Version None)
Quarter: 2011Q4

REPORT INFORMATION
  Report Type: 
  Country: None (occurrence: None)
  Receive Date: 20111129
  Receipt Date: 20111121
  Transmission Date: 20120403
  Serious: Yes (Other)
  Sender: FDA-Public Use
  Company Number: AU-ROCHE-802078

PATIENT
  Sex: Female
  Weight: 80 kg

DRUGS (13)
  1. ACTEMRA [Suspect]
  2. ACTEMRA [Suspect]
  3. LYRICA [Concomitant]
  4. CYMBALTA [Concomitant]
  5. NEXIUM [Concomitant]
  6. ACTEMRA [Suspect]
     Indication: RHEUMATOID ARTHRITIS
     Route: 065
  7. LEVOTHYROXINE SODIUM [Concomitant]
  8. ACTEMRA [Suspect]
  9. ENDEP [Concomitant]
  10. CATAPRES [Concomitant]
     Dosage: DRUG REPORTED AS CATAPRESS
  11. FOLIC ACID [Concomitant]
  12. METHOTREXATE [Concomitant]
  13. LIVIAL [Concomitant]

REACTIONS (5)
  - OROPHARYNGEAL PAIN [None]
  - MOUTH ULCERATION [None]
  - HEADACHE [None]
  - RASH [None]
  - PARAESTHESIA ORAL [None]
